FAERS Safety Report 5509158-4 (Version None)
Quarter: 2007Q4

REPORT INFORMATION
  Report Type: 
  Country: None (occurrence: None)
  Receive Date: 20071107
  Receipt Date: 20071026
  Transmission Date: 20080405
  Serious: Yes (Other)
  Sender: FDA-Public Use
  Company Number: JP-ROCHE-486165

PATIENT
  Age: 5 Year
  Sex: Female

DRUGS (4)
  1. TAMIFLU [Suspect]
     Dosage: FORM: DRY SYRUP
     Route: 048
     Dates: start: 20070205, end: 20070205
  2. METHY-F [Concomitant]
     Route: 048
  3. MUCOSOLVAN [Concomitant]
     Route: 048
     Dates: start: 20070205, end: 20070205
  4. ZESULAN [Concomitant]
     Dosage: FORM REPORTED AS FINE GRANULES.
     Route: 048
     Dates: start: 20070205, end: 20070205

REACTIONS (3)
  - ABNORMAL BEHAVIOUR [None]
  - CONVULSION [None]
  - VOMITING [None]
